FAERS Safety Report 7320235-8 (Version None)
Quarter: 2011Q1

REPORT INFORMATION
  Report Type: 
  Country: None (occurrence: None)
  Receive Date: 20110214
  Receipt Date: 20110131
  Transmission Date: 20110831
  Serious: Yes (Other)
  Sender: FDA-Public Use
  Company Number: US-1184635

PATIENT
  Sex: Female
  Weight: 81.6475 kg

DRUGS (7)
  1. IMDUR [Concomitant]
  2. ASPIRIN [Concomitant]
  3. RHINOCORT [Concomitant]
  4. SIMVASTATIN [Concomitant]
  5. SYSTANE EYE DROPS [Suspect]
     Indication: DRY EYE
     Dosage: OPHTHALMIC
     Route: 047
  6. DITROPAN [Concomitant]
  7. CARDIAC THERAPY [Concomitant]

REACTIONS (1)
  - DIPLOPIA [None]
